FAERS Safety Report 4589524-4 (Version None)
Quarter: 2005Q1

REPORT INFORMATION
  Report Type: 
  Country: None (occurrence: None)
  Receive Date: 20050216
  Receipt Date: 20050204
  Transmission Date: 20050727
  Serious: Yes (Other)
  Sender: FDA-Public Use
  Company Number: 2005027996

PATIENT
  Age: 52 Year
  Sex: Female

DRUGS (1)
  1. XALATAN [Suspect]
     Indication: GLAUCOMA
     Dosage: DAILY, OPHTHALMIC
     Route: 047
     Dates: start: 20021210, end: 20041201

REACTIONS (2)
  - VISION BLURRED [None]
  - VISUAL DISTURBANCE [None]
